FAERS Safety Report 12632238 (Version 2)
Quarter: 2016Q3

REPORT INFORMATION
  Report Type: Spontaneous
  Country: US (occurrence: US)
  Receive Date: 20160808
  Receipt Date: 20160808
  Transmission Date: 20161109
  Serious: No
  Sender: FDA-Public Use
  Company Number: US-BEH-2016062227

PATIENT
  Sex: Female
  Weight: 111 kg

DRUGS (7)
  1. CEFDINIR. [Concomitant]
     Active Substance: CEFDINIR
  2. EPIPEN [Concomitant]
     Active Substance: EPINEPHRINE
  3. CYCLOSPORINE. [Concomitant]
     Active Substance: CYCLOSPORINE
  4. MELOXICAM. [Concomitant]
     Active Substance: MELOXICAM
  5. HIZENTRA [Suspect]
     Active Substance: HUMAN IMMUNOGLOBULIN G
     Indication: HYPOGAMMAGLOBULINAEMIA
     Route: 058
     Dates: start: 20140624
  6. ALBUTEROL. [Concomitant]
     Active Substance: ALBUTEROL
  7. HIZENTRA [Suspect]
     Active Substance: HUMAN IMMUNOGLOBULIN G
     Indication: IMMUNODEFICIENCY COMMON VARIABLE
     Route: 058
     Dates: start: 20140624

REACTIONS (1)
  - Nasopharyngitis [Unknown]
